FAERS Safety Report 5304849-2 (Version None)
Quarter: 2007Q2

REPORT INFORMATION
  Report Type: 
  Country: None (occurrence: None)
  Receive Date: 20070423
  Receipt Date: 20070312
  Transmission Date: 20071010
  Serious: Yes (Other)
  Sender: FDA-Public Use
  Company Number: US-SANOFI-SYNTHELABO-A03200702482

PATIENT
  Sex: Male

DRUGS (5)
  1. KLONOPIN [Concomitant]
     Dosage: UNK
     Route: 065
  2. RITALIN [Concomitant]
     Dosage: UNK
     Route: 065
  3. FLEXERLL [Concomitant]
     Dosage: UNK
     Route: 065
  4. AMITRYTYLINE [Concomitant]
     Dosage: UNK
     Route: 065
  5. AMBIEN [Suspect]
     Indication: INSOMNIA
     Route: 048
     Dates: start: 20010101, end: 20030101

REACTIONS (4)
  - AMNESIA [None]
  - HALLUCINATION [None]
  - ROAD TRAFFIC ACCIDENT [None]
  - SLEEP WALKING [None]
